FAERS Safety Report 13276629 (Version 3)
Quarter: 2017Q1

REPORT INFORMATION
  Report Type: Report from Study
  Country: KR (occurrence: KR)
  Receive Date: 20170228
  Receipt Date: 20170320
  Transmission Date: 20170428
  Serious: Yes (Hospitalization)
  Sender: FDA-Public Use
  Company Number: KR-B.I. PHARMACEUTICALS,INC./RIDGEFIELD-2017-BI-009533

PATIENT
  Age: 63 Year
  Sex: Male
  Weight: 62 kg

DRUGS (6)
  1. GILOTRIF [Suspect]
     Active Substance: AFATINIB
     Indication: NON-SMALL CELL LUNG CANCER
     Route: 048
     Dates: start: 20160921, end: 20170214
  2. TARGIN [Concomitant]
     Active Substance: NALOXONE HYDROCHLORIDE\OXYCODONE HYDROCHLORIDE
     Indication: NEOPLASM MALIGNANT
     Dosage: UNIT DOSE/ DAILY DOSE: 20/10MG
     Route: 065
     Dates: start: 20160916
  3. DICODE [Concomitant]
     Indication: NEOPLASM MALIGNANT
     Dosage: SR- SUSTAINED RELEASE
     Route: 065
     Dates: start: 20160916
  4. SMECTA [Concomitant]
     Active Substance: MONTMORILLONITE
     Indication: DIARRHOEA
     Route: 065
     Dates: start: 20161110
  5. MEGESTROL [Concomitant]
     Active Substance: MEGESTROL
     Indication: NEOPLASM MALIGNANT
     Route: 065
     Dates: start: 20160916
  6. IRCODON [Concomitant]
     Indication: NEOPLASM MALIGNANT
     Route: 065
     Dates: start: 20161026

REACTIONS (1)
  - Pneumonia [Not Recovered/Not Resolved]

NARRATIVE: CASE EVENT DATE: 20170206
